FAERS Safety Report 5068741-3 (Version None)
Quarter: 2006Q3

REPORT INFORMATION
  Report Type: 
  Country: None (occurrence: None)
  Receive Date: 20060802
  Receipt Date: 20060313
  Transmission Date: 20061208
  Serious: No
  Sender: FDA-Public Use
  Company Number: US-BRISTOL-MYERS SQUIBB COMPANY-13313044

PATIENT
  Age: 68 Year
  Sex: Male
  Weight: 109 kg

DRUGS (4)
  1. COUMADIN [Suspect]
     Indication: CARDIAC MURMUR
     Dosage: 2.5 MG MON - FRI, 5 MG SAT - SUN
     Dates: start: 20050901
  2. CREON [Concomitant]
  3. METOPROLOL [Concomitant]
  4. LOTREL [Concomitant]

REACTIONS (6)
  - ABDOMINAL PAIN UPPER [None]
  - ANOREXIA [None]
  - CHILLS [None]
  - DRY MOUTH [None]
  - FATIGUE [None]
  - NAUSEA [None]
